FAERS Safety Report 7955161-4 (Version None)
Quarter: 2011Q4

REPORT INFORMATION
  Report Type: 
  Country: None (occurrence: None)
  Receive Date: 20111202
  Receipt Date: 20060426
  Transmission Date: 20120403
  Serious: Yes (Other)
  Sender: FDA-Public Use
  Company Number: BR-ROCHE-1017898

PATIENT
  Age: 28 Year
  Sex: Female

DRUGS (3)
  1. FEXOFENADINE HYDROCHLORIDE [Concomitant]
  2. SYMBICORT [Concomitant]
  3. XOLAIR [Suspect]
     Indication: ASTHMA
     Route: 058
     Dates: start: 20060317, end: 20060101

REACTIONS (10)
  - RHINITIS [None]
  - EAR PAIN [None]
  - OROPHARYNGEAL PAIN [None]
  - SKIN DISCOLOURATION [None]
  - SINUSITIS [None]
  - INFLUENZA [None]
  - PAIN [None]
  - DYSPNOEA [None]
  - ASTHMATIC CRISIS [None]
  - NASOPHARYNGITIS [None]
